FAERS Safety Report 6283772-3 (Version None)
Quarter: 2009Q3

REPORT INFORMATION
  Report Type: 
  Country: None (occurrence: None)
  Receive Date: 20090724
  Receipt Date: 20090716
  Transmission Date: 20100115
  Serious: Yes (Other)
  Sender: FDA-Public Use
  Company Number: BR-ASTRAZENECA-2009UW19426

PATIENT
  Age: 61 Year
  Sex: Male

DRUGS (2)
  1. CRESTOR [Suspect]
     Route: 048
     Dates: start: 20040101, end: 20090501
  2. CRESTOR [Suspect]
     Route: 048
     Dates: start: 20090501

REACTIONS (2)
  - ARTERIAL OCCLUSIVE DISEASE [None]
  - HYPERCHOLESTEROLAEMIA [None]
